FAERS Safety Report 9633262 (Version 3)
Quarter: 2013Q4

REPORT INFORMATION
  Report Type: Report from Study
  Country: US (occurrence: US)
  Receive Date: 20131021
  Receipt Date: 20131114
  Transmission Date: 20140711
  Serious: Yes (Hospitalization)
  Sender: FDA-Public Use
  Company Number: PHEH2013US017133

PATIENT
  Age: 61 Year
  Sex: Female
  Weight: 87.53 kg

DRUGS (2)
  1. GILENYA [Suspect]
     Indication: RELAPSING-REMITTING MULTIPLE SCLEROSIS
     Dosage: 0.5 MG, QD
     Route: 048
     Dates: start: 20111018
  2. GILENYA [Suspect]
     Dosage: 0.5 MG, QD
     Route: 048
     Dates: start: 20131015, end: 20131015

REACTIONS (5)
  - Sinus bradycardia [Recovered/Resolved]
  - Blood pressure systolic increased [Unknown]
  - Chills [Unknown]
  - Rash [Unknown]
  - Pyrexia [Unknown]
